FAERS Safety Report 5792081-8 (Version None)
Quarter: 2008Q2

REPORT INFORMATION
  Report Type: 
  Country: None (occurrence: None)
  Receive Date: 20080623
  Receipt Date: 20080611
  Transmission Date: 20081010
  Serious: Yes (Death, Hospitalization)
  Sender: FDA-Public Use
  Company Number: CERZ-1000124

PATIENT
  Age: 2 Year
  Sex: Female
  Weight: 12 kg

DRUGS (2)
  1. CEREZYME [Suspect]
     Indication: GAUCHER'S DISEASE
     Dosage: 1600 U, Q2W, INTRAVENOUS, INTRAVENOUS
     Route: 042
     Dates: start: 20060919, end: 20070703
  2. CEREZYME [Suspect]
     Indication: GAUCHER'S DISEASE
     Dosage: 1600 U, Q2W, INTRAVENOUS, INTRAVENOUS
     Route: 042
     Dates: start: 20070703, end: 20080205

REACTIONS (7)
  - BRONCHOPNEUMONIA [None]
  - BULBAR PALSY [None]
  - CONVULSION [None]
  - GASTRITIS [None]
  - GASTROOESOPHAGEAL REFLUX DISEASE [None]
  - LOWER RESPIRATORY TRACT INFECTION [None]
  - NO THERAPEUTIC RESPONSE [None]
